FAERS Safety Report 15939350 (Version 1)
Quarter: 2019Q1

REPORT INFORMATION
  Report Type: Spontaneous
  Country: DE (occurrence: DE)
  Receive Date: 20190208
  Receipt Date: 20190208
  Transmission Date: 20190417
  Serious: Yes (Hospitalization)
  Sender: FDA-Public Use
  Company Number: DE-NOVOPROD-645534

PATIENT
  Age: 67 Year
  Sex: Male

DRUGS (2)
  1. NOVORAPID [Suspect]
     Active Substance: INSULIN ASPART
     Dosage: 10-12 U
     Route: 058
  2. NOVORAPID [Suspect]
     Active Substance: INSULIN ASPART
     Indication: TYPE 1 DIABETES MELLITUS
     Dosage: 10-12 U
     Route: 058

REACTIONS (3)
  - Pneumonia [Recovered/Resolved]
  - Blood glucose increased [Recovered/Resolved]
  - Loss of consciousness [Recovered/Resolved]
